FAERS Safety Report 12399906 (Version 1)
Quarter: 2016Q2

REPORT INFORMATION
  Report Type: Spontaneous
  Country: JP (occurrence: JP)
  Receive Date: 20160524
  Receipt Date: 20160524
  Transmission Date: 20160815
  Serious: Yes (Other)
  Sender: FDA-Public Use
  Company Number: JP-009507513-1605JPN010863

PATIENT

DRUGS (3)
  1. TELAVIC [Suspect]
     Active Substance: TELAPREVIR
     Indication: HEPATITIS C VIRUS TEST POSITIVE
     Dosage: 500 OR 750 MG IN EVERY 8 HOURS
     Route: 048
  2. REBETOL [Suspect]
     Active Substance: RIBAVIRIN
     Indication: HEPATITIS C VIRUS TEST POSITIVE
     Dosage: 600-1000 MG BASED ON BODY WEIGHT
     Route: 048
  3. PEGINTRON [Suspect]
     Active Substance: PEGINTERFERON ALFA-2B
     Indication: HEPATITIS C VIRUS TEST POSITIVE
     Dosage: 1.5 MG/KG, QW
     Route: 058

REACTIONS (11)
  - Hepatitis C [Unknown]
  - Anaemia [Recovered/Resolved]
  - Renal impairment [Recovered/Resolved]
  - Viral load increased [Unknown]
  - Psychotic disorder [Recovered/Resolved]
  - Dyspepsia [Recovered/Resolved]
  - Remission not achieved [Unknown]
  - Skin disorder [Recovered/Resolved]
  - Malaise [Recovered/Resolved]
  - Drug effect incomplete [Unknown]
  - Treatment noncompliance [Unknown]
